FAERS Safety Report 8438804-0 (Version None)
Quarter: 2012Q2

REPORT INFORMATION
  Report Type: 
  Country: None (occurrence: None)
  Receive Date: 20120608
  Receipt Date: 20120605
  Transmission Date: 20120825
  Serious: Yes (Hospitalization, Other)
  Sender: FDA-Public Use
  Company Number: 2011SP002479

PATIENT
  Age: 42 Year
  Sex: Female
  Weight: 62.1428 kg

DRUGS (3)
  1. NUVARING [Suspect]
     Indication: CONTRACEPTION
     Dates: start: 20060101, end: 20061101
  2. NUVARING [Suspect]
     Indication: MENSTRUATION IRREGULAR
     Dates: start: 20060101, end: 20061101
  3. VALTREX [Concomitant]

REACTIONS (26)
  - MENTAL DISORDER [None]
  - INJURY [None]
  - COAGULOPATHY [None]
  - COITAL BLEEDING [None]
  - GRANULOMA [None]
  - BRONCHITIS [None]
  - INTERNATIONAL NORMALISED RATIO INCREASED [None]
  - LYMPHADENOPATHY [None]
  - VAGINAL HAEMORRHAGE [None]
  - ACTINIC KERATOSIS [None]
  - TOOTH DISORDER [None]
  - PAIN [None]
  - PULMONARY EMBOLISM [None]
  - HYPERCOAGULATION [None]
  - EMOTIONAL DISORDER [None]
  - MELANOCYTIC NAEVUS [None]
  - METRORRHAGIA [None]
  - ORTHOSTATIC HYPOTENSION [None]
  - RASH [None]
  - INFLUENZA LIKE ILLNESS [None]
  - HAEMATOCRIT DECREASED [None]
  - HEADACHE [None]
  - DEEP VEIN THROMBOSIS [None]
  - SINUS TACHYCARDIA [None]
  - PETECHIAE [None]
  - HAEMORRHAGE [None]
